FAERS Safety Report 20449946 (Version 1)
Quarter: 2022Q1

REPORT INFORMATION
  Report Type: Spontaneous
  Country: US (occurrence: None)
  Receive Date: 20220209
  Receipt Date: 20220209
  Transmission Date: 20220423
  Serious: No
  Sender: FDA-Public Use
  Company Number: 2022A048724

PATIENT
  Age: 76 Year
  Sex: Female

DRUGS (2)
  1. SYMBICORT [Suspect]
     Active Substance: BUDESONIDE\FORMOTEROL FUMARATE DIHYDRATE
     Indication: Asthma
     Dosage: 160/4.5 TWO PUFFS DAILY
     Route: 055
  2. SYMBICORT [Suspect]
     Active Substance: BUDESONIDE\FORMOTEROL FUMARATE DIHYDRATE
     Indication: Asthma
     Dosage: 80/4.5 ONE PUFF DAILY
     Route: 055

REACTIONS (11)
  - Head discomfort [Recovered/Resolved]
  - Nervousness [Recovered/Resolved]
  - Wheezing [Recovered/Resolved]
  - Secretion discharge [Recovered/Resolved]
  - Product dose omission issue [Recovered/Resolved]
  - Chest discomfort [Recovered/Resolved]
  - Dyspnoea [Recovered/Resolved]
  - Ear discomfort [Recovered/Resolved]
  - Upper-airway cough syndrome [Recovered/Resolved]
  - Increased upper airway secretion [Recovered/Resolved]
  - Off label use [Recovered/Resolved]

NARRATIVE: CASE EVENT DATE: 20210101
